FAERS Safety Report 21756312 (Version 1)
Quarter: 2022Q4

REPORT INFORMATION
  Report Type: Report from Study
  Country: US (occurrence: US)
  Receive Date: 20221220
  Receipt Date: 20221220
  Transmission Date: 20230113
  Serious: Yes (Death, Other)
  Sender: FDA-Public Use
  Company Number: US-009507513-2211USA006591

PATIENT
  Age: 81 Year
  Sex: Male
  Weight: 60.771 kg

DRUGS (14)
  1. VERQUVO [Suspect]
     Active Substance: VERICIGUAT
     Indication: Pulmonary arteriovenous fistula
     Dosage: 1 DOSAGE FORM, QD
     Route: 048
  2. BUMEX [Concomitant]
     Active Substance: BUMETANIDE
     Dosage: 1 TABLET, QD
     Route: 048
  3. CHOLECALCIFEROL [Concomitant]
     Active Substance: CHOLECALCIFEROL
     Dosage: 2000 UT, QD
     Route: 048
  4. PLAVIX [Concomitant]
     Active Substance: CLOPIDOGREL BISULFATE
     Dosage: 1 TABLET, QD
     Route: 048
  5. LANOXIN [Concomitant]
     Active Substance: DIGOXIN
     Dosage: 1 TABLET, QD
     Route: 048
  6. ZAROXOLYN [Concomitant]
     Active Substance: METOLAZONE
     Dosage: 1 TABLET, QD
     Route: 048
  7. KLOR-CON [Concomitant]
     Active Substance: POTASSIUM CHLORIDE
     Dosage: 20 MEQ, PRN
     Route: 048
  8. XARELTO [Concomitant]
     Active Substance: RIVAROXABAN
     Dosage: 1 TABLET, QD, WITH DINNER
     Route: 048
  9. CRESTOR [Concomitant]
     Active Substance: ROSUVASTATIN CALCIUM
     Dosage: 1 TABLET, QD
     Route: 048
  10. VITAMIN B12 [Concomitant]
     Active Substance: CYANOCOBALAMIN
     Dosage: 1 TABLET, QD
     Route: 048
  11. TYLENOL [Concomitant]
     Active Substance: ACETAMINOPHEN
     Indication: Pain
     Dosage: 2 TABLETS, PRN EVERY 6 HOURS
     Route: 048
  12. LIPITOR [Concomitant]
     Active Substance: ATORVASTATIN CALCIUM
     Dosage: 1 TABLET, ONCE EVERY NIGHT AT BEDTIME
     Route: 048
  13. MARINOL [Concomitant]
     Active Substance: DRONABINOL
     Dosage: 7.5 MG, PRN
  14. NORCO [Concomitant]
     Active Substance: ACETAMINOPHEN\HYDROCODONE BITARTRATE
     Indication: Pain
     Dosage: 1 TABLET, PRN EVERY 6 HOURS, STRENGTH: 5-325 MG
     Route: 048

REACTIONS (41)
  - Death [Fatal]
  - Cardiogenic shock [Unknown]
  - Ventricular hypokinesia [Unknown]
  - Myocardial infarction [Unknown]
  - Cardiac ventricular thrombosis [Unknown]
  - Ischaemic cardiomyopathy [Unknown]
  - Cardio-respiratory arrest [Unknown]
  - Atrial fibrillation [Unknown]
  - Pulmonary hypertension [Unknown]
  - Mitral valve incompetence [Unknown]
  - Tricuspid valve incompetence [Unknown]
  - Pulmonary valve incompetence [Unknown]
  - Ascites [Unknown]
  - Mitral valve calcification [Unknown]
  - Ventricular extrasystoles [Unknown]
  - Pleural effusion [Unknown]
  - Generalised oedema [Unknown]
  - Hepatic steatosis [Unknown]
  - Cholelithiasis [Unknown]
  - Jaundice [Unknown]
  - Genital haemorrhage [Unknown]
  - Arteriosclerosis [Unknown]
  - Atelectasis [Unknown]
  - Lung disorder [Unknown]
  - International normalised ratio increased [Unknown]
  - Ill-defined disorder [Unknown]
  - Diverticulum intestinal [Unknown]
  - Oedema peripheral [Unknown]
  - Lymphoedema [Unknown]
  - Peripheral venous disease [Unknown]
  - Normocytic anaemia [Unknown]
  - Hyperglycaemia [Unknown]
  - Hyperlipidaemia [Unknown]
  - Malnutrition [Unknown]
  - Asthenia [Unknown]
  - Brain natriuretic peptide abnormal [Unknown]
  - Full blood count abnormal [Unknown]
  - Metabolic function test abnormal [Unknown]
  - Nausea [Unknown]
  - Vomiting [Unknown]
  - Product use in unapproved indication [Unknown]

NARRATIVE: CASE EVENT DATE: 20210825
